FAERS Safety Report 13685155 (Version 1)
Quarter: 2017Q2

REPORT INFORMATION
  Report Type: Spontaneous
  Country: US (occurrence: US)
  Receive Date: 20170623
  Receipt Date: 20170623
  Transmission Date: 20170830
  Serious: No
  Sender: FDA-Public Use
  Company Number: US-BAUSCH-BL-2016-015776

PATIENT
  Age: 45 Year
  Sex: Male
  Weight: 74.91 kg

DRUGS (2)
  1. SOLODYN [Suspect]
     Active Substance: MINOCYCLINE HYDROCHLORIDE
     Route: 048
     Dates: start: 20160630, end: 20160701
  2. SOLODYN [Suspect]
     Active Substance: MINOCYCLINE HYDROCHLORIDE
     Indication: ACNE
     Route: 048
     Dates: start: 20160627, end: 20160630

REACTIONS (7)
  - Diarrhoea [Unknown]
  - Dizziness [Unknown]
  - Palpitations [Unknown]
  - Heart rate increased [Unknown]
  - Insomnia [Unknown]
  - Wrong technique in product usage process [Unknown]
  - Incorrect dose administered [Unknown]

NARRATIVE: CASE EVENT DATE: 20160627
